FAERS Safety Report 9098354 (Version 2)
Quarter: 2013Q1

REPORT INFORMATION
  Report Type: Spontaneous
  Country: US (occurrence: US)
  Receive Date: 20130213
  Receipt Date: 20130225
  Transmission Date: 20140127
  Serious: Yes (Other)
  Sender: FDA-Public Use
  Company Number: CHPA2013US002639

PATIENT
  Age: 37 Year
  Sex: Female

DRUGS (1)
  1. CONTROL PLP [Suspect]
     Indication: SMOKING CESSATION THERAPY
     Dosage: 21 MG QD
     Route: 062
     Dates: end: 20130204

REACTIONS (4)
  - Cervix carcinoma [Unknown]
  - Road traffic accident [Unknown]
  - Stress [Unknown]
  - Application site pruritus [Not Recovered/Not Resolved]
